FAERS Safety Report 7001144-0 (Version None)
Quarter: 2010Q3

REPORT INFORMATION
  Report Type: 
  Country: None (occurrence: None)
  Receive Date: 20100920
  Receipt Date: 20100908
  Transmission Date: 20110219
  Serious: Yes (Other)
  Sender: FDA-Public Use
  Company Number: US-ROCHE-720500

PATIENT
  Sex: Female

DRUGS (9)
  1. XELODA [Suspect]
     Indication: PRODUCT USED FOR UNKNOWN INDICATION
     Route: 065
  2. TYKERB [Suspect]
     Indication: BREAST CANCER
     Route: 048
     Dates: start: 20100628
  3. TYKERB [Suspect]
     Route: 048
     Dates: start: 20100812
  4. VICODIN [Concomitant]
  5. XANAX [Concomitant]
  6. ATIVAN [Concomitant]
  7. FLEXERIL [Concomitant]
  8. BENADRYL [Concomitant]
  9. MARINOL [Concomitant]

REACTIONS (16)
  - ASTHENIA [None]
  - COUGH [None]
  - DECREASED APPETITE [None]
  - DIARRHOEA [None]
  - DYSPEPSIA [None]
  - DYSPNOEA [None]
  - FATIGUE [None]
  - HYPERSOMNIA [None]
  - IMPAIRED HEALING [None]
  - NAUSEA [None]
  - ORAL MUCOSAL EXFOLIATION [None]
  - PALMAR-PLANTAR ERYTHRODYSAESTHESIA SYNDROME [None]
  - SKIN ULCER HAEMORRHAGE [None]
  - STOMATITIS [None]
  - TACHYCARDIA [None]
  - VOMITING [None]
